FAERS Safety Report 17662971 (Version 3)
Quarter: 2020Q2

REPORT INFORMATION
  Report Type: Report from Study
  Country: US (occurrence: US)
  Receive Date: 20200413
  Receipt Date: 20200609
  Transmission Date: 20200713
  Serious: No
  Sender: FDA-Public Use
  Company Number: NVSC2020US098639

PATIENT
  Age: 42 Year
  Sex: Female

DRUGS (1)
  1. COSENTYX [Suspect]
     Active Substance: SECUKINUMAB
     Indication: PSORIASIS
     Dosage: 300 MG, QW (ON THE SKIN)
     Route: 003
     Dates: start: 202003

REACTIONS (1)
  - Blister [Unknown]

NARRATIVE: CASE EVENT DATE: 202003
